FAERS Safety Report 20843339 (Version 1)
Quarter: 2022Q2

REPORT INFORMATION
  Report Type: Spontaneous
  Country: US (occurrence: US)
  Receive Date: 20220518
  Receipt Date: 20220518
  Transmission Date: 20220720
  Serious: No
  Sender: FDA-Public Use
  Company Number: US-BRISTOL-MYERS SQUIBB COMPANY-2022-040376

PATIENT
  Age: 79 Year
  Sex: Male

DRUGS (8)
  1. REVLIMID [Suspect]
     Active Substance: LENALIDOMIDE
     Indication: Plasma cell myeloma
     Dosage: 1 CAPSULE BY MOUTH DAILY ON DAYS 1-21 OF EACH 28 DAY CYCLE,TAKE WHOLE WITH WATER AT THE SAME TIME EA
     Route: 048
     Dates: start: 20211106
  2. DEXAMETHASONE [Concomitant]
     Active Substance: DEXAMETHASONE
     Indication: Plasma cell myeloma
  3. AMBIEN [Concomitant]
     Active Substance: ZOLPIDEM TARTRATE
     Indication: Plasma cell myeloma
  4. AMIODARONE [Concomitant]
     Active Substance: AMIODARONE
     Indication: Plasma cell myeloma
  5. DULOXETINE [Concomitant]
     Active Substance: DULOXETINE
     Indication: Plasma cell myeloma
  6. FAMOTIDINE [Concomitant]
     Active Substance: FAMOTIDINE
     Indication: Plasma cell myeloma
  7. TAMSULOSIN HYDROCHLORIDE [Concomitant]
     Active Substance: TAMSULOSIN HYDROCHLORIDE
     Indication: Plasma cell myeloma
  8. GABAPENTIN [Concomitant]
     Active Substance: GABAPENTIN
     Indication: Plasma cell myeloma

REACTIONS (1)
  - Tooth disorder [Unknown]
